FAERS Safety Report 18607580 (Version 1)
Quarter: 2020Q4

REPORT INFORMATION
  Report Type: Spontaneous
  Country: AU (occurrence: AU)
  Receive Date: 20201211
  Receipt Date: 20201211
  Transmission Date: 20210114
  Serious: Yes (Other)
  Sender: FDA-Public Use
  Company Number: AU-MYLANLABS-2020M1100315

PATIENT
  Age: 71 Year
  Sex: Male

DRUGS (1)
  1. ADESAN HCT 16/12.5 [Suspect]
     Active Substance: CANDESARTAN CILEXETIL\HYDROCHLOROTHIAZIDE
     Indication: PRODUCT USED FOR UNKNOWN INDICATION
     Dosage: UNK

REACTIONS (2)
  - Arrhythmia [Recovered/Resolved]
  - Product substitution issue [Recovered/Resolved]
